FAERS Safety Report 21932612 (Version 2)
Quarter: 2023Q1

REPORT INFORMATION
  Report Type: Spontaneous
  Country: ES (occurrence: ES)
  Receive Date: 20230131
  Receipt Date: 20230202
  Transmission Date: 20230417
  Serious: Yes (Other)
  Sender: FDA-Public Use
  Company Number: ES-BRISTOL-MYERS SQUIBB COMPANY-2023-014031

PATIENT
  Age: 89 Year
  Sex: Male

DRUGS (2)
  1. ELIQUIS [Suspect]
     Active Substance: APIXABAN
     Indication: Cerebrovascular accident prophylaxis
     Dates: start: 202212
  2. ELIQUIS [Suspect]
     Active Substance: APIXABAN

REACTIONS (6)
  - Hypotension [Unknown]
  - Infarction [Unknown]
  - Somnolence [Unknown]
  - Loss of consciousness [Unknown]
  - Aphasia [Unknown]
  - Transient ischaemic attack [Unknown]
